FAERS Safety Report 23746490 (Version 4)
Quarter: 2024Q2

REPORT INFORMATION
  Report Type: Spontaneous
  Country: US (occurrence: US)
  Receive Date: 20240416
  Receipt Date: 20240620
  Transmission Date: 20240716
  Serious: Yes (Hospitalization, Other)
  Sender: FDA-Public Use
  Company Number: US-VIIV HEALTHCARE LIMITED-US2024045535

PATIENT

DRUGS (2)
  1. VOCABRIA [Suspect]
     Active Substance: CABOTEGRAVIR SODIUM
     Indication: Prophylaxis against HIV infection
     Dosage: 30 MG
     Route: 048
     Dates: start: 20240124
  2. ESTRADIOL [Concomitant]
     Active Substance: ESTRADIOL
     Indication: Product used for unknown indication
     Dosage: UNK
     Dates: start: 202305

REACTIONS (19)
  - Stevens-Johnson syndrome [Unknown]
  - Toxic epidermal necrolysis [Unknown]
  - Oral disorder [Not Recovered/Not Resolved]
  - Skin exfoliation [Not Recovered/Not Resolved]
  - Stomatitis [Unknown]
  - Eye swelling [Unknown]
  - Lip swelling [Unknown]
  - Speech disorder [Unknown]
  - Oral mucosal blistering [Unknown]
  - Lip blister [Unknown]
  - Staphylococcal infection [Unknown]
  - Salivary hypersecretion [Unknown]
  - Superficial injury of eye [Unknown]
  - Wound [Unknown]
  - Hepatic enzyme increased [Unknown]
  - Lip ulceration [Unknown]
  - Tongue ulceration [Unknown]
  - Mouth ulceration [Unknown]
  - Rash [Unknown]

NARRATIVE: CASE EVENT DATE: 20240211
